FAERS Safety Report 7190226-9 (Version None)
Quarter: 2010Q4

REPORT INFORMATION
  Report Type: 
  Country: None (occurrence: None)
  Receive Date: 20101223
  Receipt Date: 20101215
  Transmission Date: 20110411
  Serious: Yes (Death, Hospitalization, Other)
  Sender: FDA-Public Use
  Company Number: US-CELGENEUS-163-21880-10121874

PATIENT
  Age: 67 Year
  Sex: Female

DRUGS (14)
  1. REVLIMID [Suspect]
     Indication: NON-HODGKIN'S LYMPHOMA
     Route: 048
     Dates: start: 20100128, end: 20100227
  2. NEUPOGEN [Concomitant]
     Route: 065
  3. DEXAMETHASONE [Concomitant]
     Route: 065
  4. RITUXAN [Concomitant]
     Route: 065
  5. ATENOLOL [Concomitant]
     Route: 065
  6. SIMVASTATIN [Concomitant]
     Route: 065
  7. VICODIN [Concomitant]
     Route: 065
  8. ACYCLOVIR SODIUM [Concomitant]
     Route: 065
  9. ONDANSETRON [Concomitant]
     Route: 065
  10. OMEPRAZOLE [Concomitant]
     Route: 065
  11. ASPIRIN [Concomitant]
     Route: 048
  12. PLATELETS [Concomitant]
     Route: 051
     Dates: start: 20100212, end: 20100212
  13. PLATELETS [Concomitant]
     Route: 051
     Dates: start: 20100214, end: 20100214
  14. PREDNISONE [Concomitant]
     Dosage: TAPERED DOSE 70 MG MINUS 10 MG
     Route: 065
     Dates: start: 20100114

REACTIONS (6)
  - DEATH [None]
  - NEUTROPHIL COUNT DECREASED [None]
  - PLATELET COUNT DECREASED [None]
  - PNEUMONIA [None]
  - PYREXIA [None]
  - WHITE BLOOD CELL COUNT DECREASED [None]
